FAERS Safety Report 4386196-9 (Version None)
Quarter: 2004Q2

REPORT INFORMATION
  Report Type: 
  Country: None (occurrence: None)
  Receive Date: 20040623
  Receipt Date: 20040611
  Transmission Date: 20050107
  Serious: Yes (Hospitalization)
  Sender: FDA-Public Use
  Company Number: GB-JNJFOC-20040603158

PATIENT
  Age: 19 Year
  Sex: Female

DRUGS (7)
  1. REMICADE [Suspect]
     Indication: RHEUMATOID ARTHRITIS
     Dosage: INTRAVENOUS
     Route: 042
     Dates: start: 20030207, end: 20030915
  2. METHOTREXATE [Concomitant]
  3. FOLIC ACID [Concomitant]
  4. FERROUS SULPHATE (FERROUS SULFATE) [Concomitant]
  5. CELECOXIB [Concomitant]
  6. PREDNISOLONE [Concomitant]
  7. TRAMADOL HCL [Concomitant]

REACTIONS (3)
  - ARTHRITIS [None]
  - MALAISE [None]
  - PYREXIA [None]
